FAERS Safety Report 4638819-4 (Version None)
Quarter: 2005Q2

REPORT INFORMATION
  Report Type: 
  Country: None (occurrence: None)
  Receive Date: 20050418
  Receipt Date: 20050418
  Transmission Date: 20051028
  Serious: No
  Sender: FDA-Public Use
  Company Number: None

PATIENT
  Sex: Female
  Weight: 34.0198 kg

DRUGS (2)
  1. ABILIFY [Suspect]
     Indication: OBSESSIVE THOUGHTS
     Dosage: 7.5 MG DAILY ORAL
     Route: 048
     Dates: start: 20050311, end: 20050314
  2. VISTARIL [Concomitant]

REACTIONS (2)
  - TONGUE DISORDER [None]
  - TREMOR [None]
